FAERS Safety Report 8826514 (Version 1)
Quarter: 2012Q4

REPORT INFORMATION
  Report Type: 
  Country: CA (occurrence: CA)
  Receive Date: 20121008
  Receipt Date: 20121008
  Transmission Date: 20130627
  Serious: Yes (Death, Other)
  Sender: FDA-Public Use
  Company Number: PHHY2011CA30422

PATIENT
  Age: 73 Year
  Sex: Male

DRUGS (1)
  1. SANDOSTATIN LAR [Suspect]
     Indication: PANCREATIC CARCINOMA METASTATIC
     Dosage: 30 mg, every 4 weeks
     Route: 030
     Dates: start: 20041209, end: 20120912

REACTIONS (2)
  - Death [Fatal]
  - Blood pressure increased [Unknown]
